FAERS Safety Report 5236436-9 (Version None)
Quarter: 2007Q1

REPORT INFORMATION
  Report Type: 
  Country: None (occurrence: None)
  Receive Date: 20070212
  Receipt Date: 20070131
  Transmission Date: 20070707
  Serious: Yes (Life-Threatening, Other)
  Sender: FDA-Public Use
  Company Number: JP-PFIZER INC-2007010896

PATIENT

DRUGS (1)
  1. ATARAX [Suspect]
     Dosage: DAILY DOSE:500MG
     Dates: start: 20070128, end: 20070128

REACTIONS (1)
  - VENTRICULAR FIBRILLATION [None]
